FAERS Safety Report 9007835 (Version 1)
Quarter: 2013Q1

REPORT INFORMATION
  Report Type: Spontaneous
  Country: US (occurrence: US)
  Receive Date: 20130111
  Receipt Date: 20130111
  Transmission Date: 20140127
  Serious: Yes (Other)
  Sender: FDA-Public Use
  Company Number: US-009507513-1012USA00408

PATIENT
  Age: 6 Year
  Sex: Male
  Weight: 24.4 kg

DRUGS (2)
  1. SINGULAIR [Suspect]
     Indication: ASTHMA
     Dosage: 1 DF, QD
     Route: 048
     Dates: start: 20090815, end: 20091215
  2. SINGULAIR [Suspect]
     Indication: HYPERSENSITIVITY

REACTIONS (8)
  - Obsessive-compulsive disorder [Recovered/Resolved]
  - Fear [Recovered/Resolved]
  - Nervousness [Recovered/Resolved]
  - Sensory disturbance [Recovered/Resolved]
  - Abnormal behaviour [Recovered/Resolved]
  - Somnambulism [Recovered/Resolved]
  - Anxiety [Recovered/Resolved]
  - Depression [Recovered/Resolved]
